FAERS Safety Report 24165430 (Version 1)
Quarter: 2024Q3

REPORT INFORMATION
  Report Type: Report from Study
  Country: US (occurrence: US)
  Receive Date: 20240802
  Receipt Date: 20240802
  Transmission Date: 20241017
  Serious: Yes (Other)
  Sender: ROCHE
  Company Number: US-ROCHE-10000034871

PATIENT
  Sex: Male

DRUGS (2)
  1. TOCILIZUMAB [Suspect]
     Active Substance: TOCILIZUMAB
     Indication: Juvenile idiopathic arthritis
     Route: 065
  2. TOCILIZUMAB [Suspect]
     Active Substance: TOCILIZUMAB
     Indication: Juvenile idiopathic arthritis

REACTIONS (12)
  - Iridocyclitis [Unknown]
  - Optic neuritis [Unknown]
  - Uveitis [Unknown]
  - Antinuclear antibody positive [Unknown]
  - Blindness [Unknown]
  - Retinal detachment [Unknown]
  - Immunodeficiency [Unknown]
  - Keratic precipitates [Unknown]
  - Uveitis [Unknown]
  - Blood creatinine increased [Unknown]
  - Hyperglycaemia [Unknown]
  - Aphakia [Unknown]
